FAERS Safety Report 4985552-5 (Version None)
Quarter: 2006Q2

REPORT INFORMATION
  Report Type: 
  Country: None (occurrence: None)
  Receive Date: 20060428
  Receipt Date: 20060130
  Transmission Date: 20061013
  Serious: No
  Sender: FDA-Public Use
  Company Number: US-GLAXOSMITHKLINE-A0591782A

PATIENT
  Sex: Female

DRUGS (1)
  1. FLONASE [Suspect]
     Indication: HOUSE DUST ALLERGY
     Route: 045

REACTIONS (4)
  - FATIGUE [None]
  - FEELING JITTERY [None]
  - INFLUENZA [None]
  - OCULAR DISCOMFORT [None]
